FAERS Safety Report 21256613 (Version 13)
Quarter: 2023Q4

REPORT INFORMATION
  Report Type: Spontaneous
  Country: PE (occurrence: PE)
  Receive Date: 20220826
  Receipt Date: 20231211
  Transmission Date: 20240109
  Serious: Yes (Other)
  Sender: FDA-Public Use
  Company Number: PE-PFIZER INC-PV202200046833

PATIENT
  Age: 53 Year
  Sex: Female

DRUGS (10)
  1. ENBREL [Suspect]
     Active Substance: ETANERCEPT
     Indication: Rheumatoid arthritis
     Dosage: UNK, WEEKLY
     Route: 058
     Dates: start: 202002, end: 202308
  2. CALCIUM [Concomitant]
     Active Substance: CALCIUM
     Dosage: UNK, DAILY
  3. CALCIUM CARBONATE\ERGOCALCIFEROL\RETINOL [Concomitant]
     Active Substance: CALCIUM CARBONATE\ERGOCALCIFEROL\RETINOL
     Dosage: UNK, DAILY
  4. FOLIC ACID [Concomitant]
     Active Substance: FOLIC ACID
     Dosage: 2 DF, DAILY
     Dates: start: 2022
  5. GABAPENTIN [Concomitant]
     Active Substance: GABAPENTIN
     Dosage: UNK
  6. ORPHENADRINE CITRATE [Concomitant]
     Active Substance: ORPHENADRINE CITRATE
     Dosage: UNK
  7. LEFLUNOMIDE [Concomitant]
     Active Substance: LEFLUNOMIDE
     Dosage: 1 DF, DAILY
  8. PREDNISONE [Concomitant]
     Active Substance: PREDNISONE
     Dosage: UNK, DAILY
  9. SULFASALAZINE [Concomitant]
     Active Substance: SULFASALAZINE
     Dosage: 2 DF, DAILY
  10. RANITIDINE [Concomitant]
     Active Substance: RANITIDINE
     Dosage: UNK, DAILY

REACTIONS (21)
  - Neoplasm malignant [Unknown]
  - Haemorrhage [Not Recovered/Not Resolved]
  - Polyp [Not Recovered/Not Resolved]
  - Uterine leiomyoma [Unknown]
  - Uterine polyp [Unknown]
  - Vaginal haemorrhage [Not Recovered/Not Resolved]
  - Pain [Not Recovered/Not Resolved]
  - Diabetes mellitus [Unknown]
  - Cervix carcinoma [Unknown]
  - Amenorrhoea [Unknown]
  - Uterine disorder [Unknown]
  - Gait disturbance [Not Recovered/Not Resolved]
  - Spinal column injury [Recovered/Resolved]
  - Endometrial thickening [Unknown]
  - Haemoptysis [Recovered/Resolved]
  - Nerve compression [Not Recovered/Not Resolved]
  - Neuritis [Not Recovered/Not Resolved]
  - Decreased immune responsiveness [Unknown]
  - Hypoaesthesia [Unknown]
  - Muscular weakness [Unknown]
  - Prolapse [Unknown]

NARRATIVE: CASE EVENT DATE: 20200801
